FAERS Safety Report 9970259 (Version 3)
Quarter: 2014Q1

REPORT INFORMATION
  Report Type: Spontaneous
  Country: US (occurrence: US)
  Receive Date: 20140306
  Receipt Date: 20140330
  Transmission Date: 20141002
  Serious: Yes (Other)
  Sender: FDA-Public Use
  Company Number: US-009507513-1403USA001641

PATIENT
  Age: 58 Year
  Sex: Female

DRUGS (13)
  1. PEGINTRON [Suspect]
     Indication: HEPATITIS C
     Dosage: 0.5 ML, ONCE A WEEK/120MCG DAILY
     Route: 058
     Dates: start: 20140103, end: 20140211
  2. REBETOL [Suspect]
     Indication: HEPATITIS C
     Dosage: 600MG AM /400MG PM,TWICE A DAY
     Route: 048
     Dates: start: 20140103, end: 20140211
  3. VICTRELIS [Suspect]
     Indication: HEPATITIS C
     Dosage: 800 MG, EVERY 8 HOURS
     Route: 048
     Dates: start: 20140131, end: 20140211
  4. LITHIUM [Concomitant]
     Dosage: 300 MG, BID
  5. ESTRADIOL [Concomitant]
     Dosage: 0.5MG TOTAL DAILY
     Route: 048
  6. PROTONIX [Concomitant]
     Dosage: 40 MG DAILY
     Route: 048
  7. PRAZOSIN [Concomitant]
     Dosage: 2 MG TOTAL DAILY
     Route: 048
  8. BENAZEPRIL HYDROCHLORIDE [Concomitant]
     Dosage: 5MG TOTAL DAILY
     Route: 048
  9. MACRODANTIN [Concomitant]
     Dosage: 50 MG TOTAL DAILY
     Route: 048
  10. LEVOTHYROXINE SODIUM [Concomitant]
     Dosage: 0.05MG TOTAL DAILY
     Route: 048
  11. METFORMIN [Concomitant]
     Dosage: 5 MG DAILY
  12. RESTORIL (TEMAZEPAM) [Concomitant]
     Dosage: 30 MG DAILY
  13. VITAMINS (UNSPECIFIED) [Concomitant]

REACTIONS (3)
  - Transfusion [Unknown]
  - Transfusion [Unknown]
  - Anaemia [Recovering/Resolving]
